FAERS Safety Report 4556472-5 (Version None)
Quarter: 2005Q1

REPORT INFORMATION
  Report Type: 
  Country: None (occurrence: None)
  Receive Date: 20050114
  Receipt Date: 20050111
  Transmission Date: 20050727
  Serious: Yes (Hospitalization)
  Sender: FDA-Public Use
  Company Number: 2004UW18692

PATIENT
  Age: 16 Year
  Sex: Male
  Weight: 69.8539 kg

DRUGS (5)
  1. SEROQUEL [Suspect]
     Indication: BIPOLAR DISORDER
     Dosage: 600 MG HS PO
     Route: 048
  2. SEROQUEL [Suspect]
     Indication: BIPOLAR DISORDER
     Dosage: 900 MG ONCE PO
     Route: 048
     Dates: start: 20040902, end: 20040902
  3. ERYTHROMYCIN [Suspect]
     Dosage: 500 MG QD
  4. SINGULAIR [Concomitant]
  5. CLARITIN [Concomitant]

REACTIONS (8)
  - ACCIDENTAL OVERDOSE [None]
  - BLOOD PRESSURE DECREASED [None]
  - DEPRESSED LEVEL OF CONSCIOUSNESS [None]
  - DISTURBANCE IN SEXUAL AROUSAL [None]
  - DRUG INTERACTION [None]
  - FALSE POSITIVE LABORATORY RESULT [None]
  - SOMNOLENCE [None]
  - TACHYCARDIA [None]
